FAERS Safety Report 8826231 (Version 1)
Quarter: 2012Q4

REPORT INFORMATION
  Report Type: 
  Country: US (occurrence: US)
  Receive Date: 20121008
  Receipt Date: 20121008
  Transmission Date: 20130627
  Serious: Yes (Hospitalization, Other)
  Sender: FDA-Public Use
  Company Number: US-SANOFI-AVENTIS-2012SA071813

PATIENT
  Age: 81 Year
  Sex: Female
  Weight: 97.52 kg

DRUGS (8)
  1. GLIBENCLAMIDE [Suspect]
     Indication: TYPE 2 DIABETES MELLITUS
     Route: 065
  2. METFORMIN [Concomitant]
     Indication: TYPE 2 DIABETES MELLITUS
  3. HYDROCHLOROTHIAZIDE [Concomitant]
  4. ATORVASTATIN [Concomitant]
  5. CARVEDILOL [Concomitant]
  6. FLUOXETINE [Concomitant]
  7. CLOPIDOGREL [Concomitant]
  8. ORAL ANTIDIABETICS [Concomitant]

REACTIONS (3)
  - Hypoglycaemia [Recovered/Resolved]
  - Fall [Unknown]
  - Hip fracture [Unknown]
